FAERS Safety Report 9543735 (Version 2)
Quarter: 2013Q4

REPORT INFORMATION
  Report Type: Spontaneous
  Country: IT (occurrence: IT)
  Receive Date: 20130923
  Receipt Date: 20131023
  Transmission Date: 20140711
  Serious: Yes (Other)
  Sender: FDA-Public Use
  Company Number: IT-BAXTER-2013BAX036295

PATIENT
  Age: 73 Year
  Sex: Female
  Weight: 60 kg

DRUGS (5)
  1. ENDOXAN BAXTER [Suspect]
     Indication: BREAST CANCER
     Route: 040
     Dates: start: 20130418, end: 20130418
  2. METHOTREXATE [Suspect]
     Indication: BREAST CANCER
     Route: 040
     Dates: start: 20130418, end: 20130418
  3. FLUOROURACILE [Suspect]
     Indication: BREAST CANCER
     Route: 040
     Dates: start: 20130418, end: 20130418
  4. ONDANSETRON [Concomitant]
     Indication: PROPHYLAXIS OF NAUSEA AND VOMITING
     Route: 040
     Dates: start: 20130418, end: 20130418
  5. SOLDESAM [Concomitant]
     Indication: PROPHYLAXIS OF NAUSEA AND VOMITING
     Route: 040
     Dates: start: 20130418, end: 20130418

REACTIONS (6)
  - Abdominal pain [Unknown]
  - Asthenia [Unknown]
  - Diarrhoea [Unknown]
  - Pain in extremity [Unknown]
  - Skin discolouration [Unknown]
  - Stomatitis [Unknown]
